FAERS Safety Report 9885333 (Version 3)
Quarter: 2014Q3

REPORT INFORMATION
  Report Type: Spontaneous
  Country: US (occurrence: US)
  Receive Date: 20140210
  Receipt Date: 20140808
  Transmission Date: 20150326
  Serious: Yes (Other)
  Sender: FDA-Public Use
  Company Number: US-PFIZER INC-2014034826

PATIENT
  Age: 56 Year
  Sex: Female

DRUGS (5)
  1. INLYTA [Suspect]
     Active Substance: AXITINIB
  2. INLYTA [Suspect]
     Active Substance: AXITINIB
     Dosage: 5 MG, UNK
  3. INLYTA [Suspect]
     Active Substance: AXITINIB
     Dosage: 10 MG, UNK
  4. INLYTA [Suspect]
     Active Substance: AXITINIB
  5. INLYTA [Suspect]
     Active Substance: AXITINIB
     Indication: RENAL CANCER
     Dosage: 7 MG, 2X/DAY (TAKE 5 MG TWICE A DAY ALONG WITH 1 MG TABLETS TWICE A DAY)
     Route: 048
     Dates: start: 201310

REACTIONS (8)
  - Diarrhoea [Unknown]
  - Renal failure [Unknown]
  - Nausea [Unknown]
  - Dry mouth [Unknown]
  - Weight decreased [Unknown]
  - Vomiting [Unknown]
  - Dehydration [Unknown]
  - Glossodynia [Unknown]
